FAERS Safety Report 13487905 (Version 1)
Quarter: 2017Q2

REPORT INFORMATION
  Report Type: Spontaneous
  Country: US (occurrence: US)
  Receive Date: 20170426
  Receipt Date: 20170426
  Transmission Date: 20170830
  Serious: No
  Sender: FDA-Public Use
  Company Number: US-ALKERMES INC.-ALK-2016-001464

PATIENT
  Age: 53 Year
  Sex: Male

DRUGS (1)
  1. VIVITROL [Suspect]
     Active Substance: NALTREXONE
     Indication: PRODUCT USED FOR UNKNOWN INDICATION
     Dosage: 380 MG, QMO
     Route: 030

REACTIONS (7)
  - Hypersomnia [Recovered/Resolved]
  - Drug dose omission [Not Recovered/Not Resolved]
  - Dizziness [Unknown]
  - Injection site reaction [Unknown]
  - Nausea [Unknown]
  - Muscle tightness [Unknown]
  - Injection site discomfort [Unknown]
